FAERS Safety Report 14126027 (Version 1)
Quarter: 2017Q4

REPORT INFORMATION
  Report Type: Spontaneous
  Country: IT (occurrence: IT)
  Receive Date: 20171025
  Receipt Date: 20171025
  Transmission Date: 20180321
  Serious: Yes (Hospitalization)
  Sender: FDA-Public Use
  Company Number: IT-BAYER-2017-198337

PATIENT
  Age: 15 Year
  Sex: Female
  Weight: 60 kg

DRUGS (3)
  1. CARDIOASPIRIN 100 MG [Suspect]
     Active Substance: ASPIRIN
     Indication: MIGRAINE WITH AURA
     Dosage: 100 MG, ONCE
     Route: 048
     Dates: start: 20170315, end: 20170330
  2. FOLIC ACID. [Concomitant]
     Active Substance: FOLIC ACID
     Indication: HYPERHOMOCYSTEINAEMIA
     Dosage: DAILY DOSE 5 MG
     Route: 048
     Dates: start: 20170207, end: 20171009
  3. VALPROIC ACID [VALPROATE SODIUM] [Concomitant]
     Indication: MIGRAINE PROPHYLAXIS
     Dosage: 750 MG, QD
     Route: 048
     Dates: start: 20170207, end: 20171009

REACTIONS (3)
  - Headache [Recovered/Resolved]
  - Asthenia [Recovered/Resolved]
  - Somnolence [Recovered/Resolved]

NARRATIVE: CASE EVENT DATE: 20170330
